FAERS Safety Report 5027735-4 (Version None)
Quarter: 2006Q2

REPORT INFORMATION
  Report Type: 
  Country: None (occurrence: None)
  Receive Date: 20060616
  Receipt Date: 20060608
  Transmission Date: 20061013
  Serious: Yes (Other)
  Sender: FDA-Public Use
  Company Number: US-JNJFOC-20060602388

PATIENT
  Sex: Female
  Weight: 40.37 kg

DRUGS (5)
  1. REMICADE [Suspect]
     Indication: CROHN'S DISEASE
     Route: 042
  2. PREVACID [Concomitant]
     Indication: GASTROOESOPHAGEAL REFLUX DISEASE
  3. OXYCODONE HCL [Concomitant]
     Indication: PAIN
  4. VALIUM [Concomitant]
     Indication: NERVOUSNESS
  5. 6-MP [Concomitant]
     Indication: CROHN'S DISEASE

REACTIONS (1)
  - LETHARGY [None]
